FAERS Safety Report 6412503-9 (Version None)
Quarter: 2009Q4

REPORT INFORMATION
  Report Type: 
  Country: None (occurrence: None)
  Receive Date: 20091023
  Receipt Date: 20090305
  Transmission Date: 20100525
  Serious: Yes (Other)
  Sender: FDA-Public Use
  Company Number: US-BRISTOL-MYERS SQUIBB COMPANY-14481832

PATIENT
  Sex: Female

DRUGS (1)
  1. KENALOG-40 [Suspect]
     Route: 014
     Dates: start: 20090119

REACTIONS (8)
  - ABASIA [None]
  - AGITATION [None]
  - ANGIOEDEMA [None]
  - ARTHRALGIA [None]
  - BRADYCARDIA [None]
  - FEELING HOT [None]
  - HYPERTENSION [None]
  - RASH [None]
